FAERS Safety Report 7268142-3 (Version None)
Quarter: 2011Q1

REPORT INFORMATION
  Report Type: 
  Country: None (occurrence: None)
  Receive Date: 20110201
  Receipt Date: 20110115
  Transmission Date: 20110831
  Serious: Yes (Other)
  Sender: FDA-Public Use
  Company Number: AU-JNJFOC-20110102247

PATIENT
  Sex: Male

DRUGS (2)
  1. NEOTIGASON [Concomitant]
     Indication: PSORIASIS
  2. STELARA [Suspect]
     Indication: PSORIASIS
     Route: 058

REACTIONS (3)
  - UPPER RESPIRATORY TRACT INFECTION [None]
  - RENAL DISORDER [None]
  - PSORIASIS [None]
